FAERS Safety Report 6073746-X (Version None)
Quarter: 2009Q1

REPORT INFORMATION
  Report Type: 
  Country: None (occurrence: None)
  Receive Date: 20090209
  Receipt Date: 20090209
  Transmission Date: 20090719
  Serious: Yes (Hospitalization)
  Sender: FDA-Public Use
  Company Number: None

PATIENT
  Age: 42 Year
  Sex: Female

DRUGS (11)
  1. WARFARIN SODIUM [Suspect]
     Indication: ANTICOAGULANT THERAPY
     Dosage: ORAL;7.5 MILLIGRAM
     Dates: start: 20060101, end: 20080101
  2. CANDESARTAN [Concomitant]
  3. ESOMEPRAZOLE MAGNESIUM [Concomitant]
  4. SIMVASTATIN [Concomitant]
  5. ASCORBIC ACID [Concomitant]
  6. FOLIC ACID [Concomitant]
  7. PLAQUENIL [Concomitant]
  8. COMBIVENT [Concomitant]
  9. COLACE [Concomitant]
  10. ARTHROTEC [Concomitant]
  11. CLONAZEPAM [Concomitant]

REACTIONS (6)
  - CONTUSION [None]
  - DRUG INTERACTION [None]
  - FUNGAL INFECTION [None]
  - INCORRECT DOSE ADMINISTERED [None]
  - INTERNATIONAL NORMALISED RATIO INCREASED [None]
  - TREATMENT NONCOMPLIANCE [None]
